FAERS Safety Report 9954134 (Version 1)
Quarter: 2014Q1

REPORT INFORMATION
  Report Type: Report from Study
  Country: US (occurrence: US)
  Receive Date: 20140304
  Receipt Date: 20140304
  Transmission Date: 20141002
  Serious: No
  Sender: FDA-Public Use
  Company Number: US-ABBVIE-13P-163-1080128-00

PATIENT
  Sex: Male
  Weight: 108.96 kg

DRUGS (8)
  1. HUMIRA [Suspect]
     Indication: PSORIATIC ARTHROPATHY
     Dates: start: 2011
  2. MELOXICAM [Suspect]
     Indication: ARTHRALGIA
     Dosage: DECREASED DOSE
  3. MELOXICAM [Suspect]
     Indication: INFLAMMATION
  4. INSULIN [Concomitant]
     Indication: DIABETES MELLITUS
  5. LOVAZA [Concomitant]
     Indication: NUTRITIONAL SUPPLEMENTATION
  6. LOVAZA [Concomitant]
     Indication: HYPERTENSION
  7. TRICOR [Concomitant]
     Indication: BLOOD CHOLESTEROL INCREASED
  8. AVAPRO [Concomitant]
     Indication: HYPERTENSION

REACTIONS (2)
  - Injection site pain [Not Recovered/Not Resolved]
  - Rash [Not Recovered/Not Resolved]
